FAERS Safety Report 5428916-8 (Version None)
Quarter: 2007Q3

REPORT INFORMATION
  Report Type: 
  Country: None (occurrence: None)
  Receive Date: 20070829
  Receipt Date: 20070821
  Transmission Date: 20080115
  Serious: Yes (Other)
  Sender: FDA-Public Use
  Company Number: PHBS2007BR13975

PATIENT
  Age: 73 Year
  Sex: Male
  Weight: 74 kg

DRUGS (6)
  1. EXELON [Suspect]
     Indication: MEMORY IMPAIRMENT
     Dosage: 1.5 OR 3 MG/D
     Route: 048
     Dates: start: 20051201, end: 20061101
  2. AMLODIPINE [Concomitant]
     Indication: HYPERTENSION
     Dosage: 5 MG, QD
     Route: 048
     Dates: end: 20070101
  3. SOMALGIN [Concomitant]
     Indication: PLATELET AGGREGATION INHIBITION
     Dosage: 81 MG, QD
     Route: 048
  4. SIMVASTATIN [Concomitant]
     Indication: BLOOD CHOLESTEROL
     Dosage: 80 MG, QD
     Route: 048
  5. CRESTOR [Concomitant]
     Indication: BLOOD CHOLESTEROL
     Dosage: 10 MG, QD
     Route: 048
  6. SUSTRATE [Concomitant]
     Dosage: 10 MG, QD
     Route: 048

REACTIONS (8)
  - ACTIVITIES OF DAILY LIVING IMPAIRED [None]
  - BLOOD POTASSIUM DECREASED [None]
  - DEMENTIA ALZHEIMER'S TYPE [None]
  - ENURESIS [None]
  - FALL [None]
  - ISCHAEMIA [None]
  - SLEEP DISORDER [None]
  - VISUAL ACUITY REDUCED [None]
